FAERS Safety Report 8028829 (Version 2)
Quarter: 2013Q2

REPORT INFORMATION
  Report Type: Spontaneous
  Country: US (occurrence: US)
  Receive Date: 20110711
  Receipt Date: 20130502
  Transmission Date: 20140414
  Serious: Yes (Death, Hospitalization)
  Sender: FDA-Public Use
  Company Number: US-GLAXOSMITHKLINE-A0874608A

PATIENT
  Sex: Female
  Weight: 74.5 kg

DRUGS (1)
  1. AVANDIA [Suspect]
     Indication: DIABETES MELLITUS
     Dosage: 8MG PER DAY
     Route: 048
     Dates: start: 20000516, end: 20060414

REACTIONS (4)
  - Myocardial infarction [Unknown]
  - Cardiac failure congestive [Unknown]
  - Coronary artery bypass [Unknown]
  - Pneumonia aspiration [Fatal]
